FAERS Safety Report 21514253 (Version 1)
Quarter: 2022Q4

REPORT INFORMATION
  Report Type: Report from Study
  Country: US (occurrence: US)
  Receive Date: 20221027
  Receipt Date: 20221027
  Transmission Date: 20230113
  Serious: No
  Sender: FDA-Public Use
  Company Number: US-ABBVIE-4158651

PATIENT
  Sex: Female

DRUGS (4)
  1. SKYRIZI [Suspect]
     Active Substance: RISANKIZUMAB-RZAA
     Indication: Psoriatic arthropathy
     Route: 058
  2. Pfizer/BioNTech [Concomitant]
     Indication: COVID-19 immunisation
     Dosage: 3RD DOSE, 1 IN ONCE
     Route: 030
     Dates: start: 20211107, end: 20211107
  3. Moderna [Concomitant]
     Indication: COVID-19 immunisation
     Dosage: 1ST DOSE, 1 IN ONCE
     Route: 030
     Dates: start: 20210316, end: 20210316
  4. Moderna [Concomitant]
     Indication: COVID-19 immunisation
     Dosage: 2ND DOSE, 1 IN ONCE
     Route: 030
     Dates: start: 20210413, end: 20210413

REACTIONS (3)
  - Psoriatic arthropathy [Not Recovered/Not Resolved]
  - Skin laceration [Not Recovered/Not Resolved]
  - Dry skin [Not Recovered/Not Resolved]
